FAERS Safety Report 6640632-3 (Version None)
Quarter: 2010Q1

REPORT INFORMATION
  Report Type: 
  Country: None (occurrence: None)
  Receive Date: 20100318
  Receipt Date: 20100305
  Transmission Date: 20100710
  Serious: Yes (Other)
  Sender: FDA-Public Use
  Company Number: TR-ELI_LILLY_AND_COMPANY-TR201003001738

PATIENT
  Sex: Female

DRUGS (3)
  1. HUMALOG [Suspect]
     Indication: GESTATIONAL DIABETES
     Dosage: 36 IU, 3/D
     Route: 058
     Dates: start: 20090405, end: 20091005
  2. PROGESTERONE [Concomitant]
     Dosage: 1 D/F, DAILY (1/D)
     Route: 065
     Dates: start: 20090405, end: 20091005
  3. HEPARIN [Concomitant]
     Dosage: 1 D/F, DAILY (1/D)
     Route: 065
     Dates: start: 20090405, end: 20091005

REACTIONS (2)
  - ABORTION SPONTANEOUS [None]
  - DRUG EXPOSURE DURING PREGNANCY [None]
